FAERS Safety Report 9507379 (Version 1)
Quarter: 2013Q1

REPORT INFORMATION
  Report Type: Spontaneous
  Country: US (occurrence: None)
  Receive Date: 20130305
  Receipt Date: 20130305
  Transmission Date: 20140127
  Serious: No
  Sender: FDA-Public Use
  Company Number: 163-21880-11052954

PATIENT
  Sex: Female

DRUGS (21)
  1. REVLIMID [Suspect]
     Indication: PLASMA CELL MYELOMA
     Dosage: 21 IN 28 DAYS
     Route: 048
     Dates: start: 20110504, end: 20120426
  2. LORTAB (VICODIN) (TABLETS) [Concomitant]
  3. CELEXA (CITALOPRAM HYDROBROMIDE) (CAPSULES) [Concomitant]
  4. FENTAYL CITRATE (FENTAYL CITRATE) (POULTICE OR PATCH) [Concomitant]
  5. OMEPRAZOLE (OMEPRAZOLE) (UNKNOWN) [Concomitant]
  6. COLACE (DOCUSATE SODIUM) (CASPSULE) [Concomitant]
  7. LEVOTHYROXINE SODIUM (LEVOTHYROXINE SODIUM) (TABLETS) [Concomitant]
  8. LORATIDINE (LORATIDINE) (TABLETS) [Concomitant]
  9. PHENERGAN (PROMETHAZINE HYDROCHLORIDE) (UNKNOWN) [Concomitant]
  10. SOOTH XP (SOOTHE XP) (EYE DROP) [Concomitant]
  11. REFRESH PM (REFRESH PM)(EYE DROPS) [Concomitant]
  12. DECADRON [Concomitant]
  13. NATURE MADE MULTIPLE VITAMIN (MULTIVITAMINS) (UNKNOWN) [Concomitant]
  14. CALCIUM WITH D (OS-CAL) (CAPSULES) [Concomitant]
  15. XANAX (ALPRAZOLAM ) (UNKNOWN) [Concomitant]
  16. COUMADIN (WARFARIN SODIUM) (TABLETS) [Concomitant]
  17. EX-LAX (DOCUSATE SODIUM) [Concomitant]
  18. MOM (MAGNESIUM HYDROXIDE) (LIQUID) [Concomitant]
  19. NACL (SODIUM CHLORIDE) (EYE DROPS) [Concomitant]
  20. SENNA S (COLOXYK WITH SENNA) (UNKNOWN) [Concomitant]
  21. SYSTANE (RHINARISS)(DROPS) [Concomitant]

REACTIONS (2)
  - Diarrhoea [None]
  - Fatigue [None]
